FAERS Safety Report 6057593-0 (Version None)
Quarter: 2009Q1

REPORT INFORMATION
  Report Type: 
  Country: None (occurrence: None)
  Receive Date: 20090127
  Receipt Date: 20090127
  Transmission Date: 20090719
  Serious: Yes (Other)
  Sender: FDA-Public Use
  Company Number: None

PATIENT
  Age: 12 Year
  Sex: Male
  Weight: 36.2878 kg

DRUGS (1)
  1. SINGULAIR [Suspect]
     Dosage: 1 EACH DAY
     Dates: start: 20081127, end: 20090115

REACTIONS (3)
  - EMOTIONAL DISORDER [None]
  - IRRITABILITY [None]
  - MOOD ALTERED [None]
